FAERS Safety Report 4890939-5 (Version None)
Quarter: 2006Q1

REPORT INFORMATION
  Report Type: 
  Country: None (occurrence: None)
  Receive Date: 20060125
  Receipt Date: 20060116
  Transmission Date: 20060701
  Serious: Yes (Other)
  Sender: FDA-Public Use
  Company Number: GB-JNJFOC-20060101664

PATIENT
  Sex: Male

DRUGS (2)
  1. RISPERDAL [Suspect]
     Route: 065
  2. RISPERDAL [Suspect]
     Indication: AUTISM SPECTRUM DISORDER
     Route: 065

REACTIONS (2)
  - LEUKOPENIA [None]
  - NEUTROPENIA [None]
